FAERS Safety Report 5453814-3 (Version None)
Quarter: 2007Q3

REPORT INFORMATION
  Report Type: 
  Country: None (occurrence: None)
  Receive Date: 20070917
  Receipt Date: 20070912
  Transmission Date: 20080115
  Serious: Yes (Other)
  Sender: FDA-Public Use
  Company Number: A0669828A

PATIENT
  Age: 69 Year
  Sex: Female
  Weight: 68.6 kg

DRUGS (15)
  1. COREG [Suspect]
     Dosage: 12.5MG TWICE PER DAY
     Route: 048
     Dates: start: 20061127, end: 20070728
  2. COREG CR [Suspect]
     Dosage: 40MG PER DAY
     Route: 048
     Dates: start: 20070729
  3. PRAVASTATIN [Concomitant]
  4. FUROSEMIDE [Concomitant]
  5. OMEPRAZOLE [Concomitant]
  6. ASPIRIN [Concomitant]
  7. MAGNESIUM SULFATE [Concomitant]
  8. ONE A DAY VITAMIN [Concomitant]
  9. CALCIUM [Concomitant]
  10. COZAAR [Concomitant]
  11. FOSAMAX [Concomitant]
  12. ALBUTEROL [Concomitant]
  13. COMBIVENT [Concomitant]
  14. VALTREX [Concomitant]
  15. QVAR 40 [Concomitant]

REACTIONS (5)
  - FOOT DEFORMITY [None]
  - INSOMNIA [None]
  - MUSCLE SPASMS [None]
  - PAIN IN EXTREMITY [None]
  - PERIPHERAL ISCHAEMIA [None]
